FAERS Safety Report 6421517-4 (Version None)
Quarter: 2009Q4

REPORT INFORMATION
  Report Type: 
  Country: None (occurrence: None)
  Receive Date: 20091030
  Receipt Date: 20091026
  Transmission Date: 20100525
  Serious: Yes (Other)
  Sender: FDA-Public Use
  Company Number: JP-JNJFOC-20091007372

PATIENT
  Age: 82 Year
  Sex: Male

DRUGS (4)
  1. DUROTEP MT [Suspect]
     Indication: DRUG USE FOR UNKNOWN INDICATION
     Route: 062
     Dates: start: 20091008, end: 20091019
  2. MORPHINE HYDROCHLORIDE [Concomitant]
     Route: 048
  3. NEOPAREN [Concomitant]
     Route: 042
  4. AMARYL [Concomitant]
     Route: 048

REACTIONS (4)
  - DELIRIUM [None]
  - DEPRESSED LEVEL OF CONSCIOUSNESS [None]
  - SOMNOLENCE [None]
  - WRONG TECHNIQUE IN DRUG USAGE PROCESS [None]
